FAERS Safety Report 12990022 (Version 1)
Quarter: 2016Q4

REPORT INFORMATION
  Report Type: Report from Study
  Country: CR (occurrence: CR)
  Receive Date: 20161201
  Receipt Date: 20161201
  Transmission Date: 20170207
  Serious: Yes (Other)
  Sender: FDA-Public Use
  Company Number: PHHY2016CR164568

PATIENT
  Age: 67 Year
  Sex: Male

DRUGS (1)
  1. DIOVAN [Suspect]
     Active Substance: VALSARTAN
     Indication: PRODUCT USED FOR UNKNOWN INDICATION
     Dosage: 320 MG, UNK
     Route: 065

REACTIONS (7)
  - Fall [Unknown]
  - Amnesia [Not Recovered/Not Resolved]
  - Cerebrospinal fluid circulation disorder [Unknown]
  - Brain neoplasm [Unknown]
  - Visual impairment [Unknown]
  - Malaise [Unknown]
  - Speech disorder [Unknown]
